FAERS Safety Report 13142808 (Version 1)
Quarter: 2017Q1

REPORT INFORMATION
  Report Type: Report from Study
  Country: US (occurrence: US)
  Receive Date: 20170124
  Receipt Date: 20170124
  Transmission Date: 20170428
  Serious: Yes (Death, Other)
  Sender: FDA-Public Use
  Company Number: US-ARIAD-2016US007286

PATIENT
  Age: 73 Year
  Sex: Male

DRUGS (1)
  1. ICLUSIG [Suspect]
     Active Substance: PONATINIB
     Indication: GASTROINTESTINAL STROMAL TUMOUR
     Dosage: 45 MG, QD
     Route: 048
     Dates: start: 20161123

REACTIONS (10)
  - Decreased appetite [Unknown]
  - Device use issue [Unknown]
  - Asthenia [Unknown]
  - Off label use [Unknown]
  - Gait disturbance [Unknown]
  - Death [Fatal]
  - Drug ineffective for unapproved indication [Unknown]
  - Neoplasm progression [Unknown]
  - Drug dose omission [Unknown]
  - Anger [Unknown]

NARRATIVE: CASE EVENT DATE: 20170114
